FAERS Safety Report 9861480 (Version 1)
Quarter: 2014Q1

REPORT INFORMATION
  Report Type: Spontaneous
  Country: US (occurrence: US)
  Receive Date: 20140203
  Receipt Date: 20140203
  Transmission Date: 20141002
  Serious: No
  Sender: FDA-Public Use
  Company Number: US-BIOGENIDEC-2013BI124038

PATIENT
  Sex: Female
  Weight: 44 kg

DRUGS (1)
  1. AVONEX [Suspect]
     Indication: MULTIPLE SCLEROSIS
     Route: 030
     Dates: start: 20020502

REACTIONS (5)
  - Gait disturbance [Recovered/Resolved]
  - Weight decreased [Not Recovered/Not Resolved]
  - Multiple sclerosis [Recovered/Resolved]
  - Accident [Not Recovered/Not Resolved]
  - Osteoporosis [Not Recovered/Not Resolved]
